FAERS Safety Report 9450889 (Version 2)
Quarter: 2013Q3

REPORT INFORMATION
  Report Type: Spontaneous
  Country: GB (occurrence: GB)
  Receive Date: 20130809
  Receipt Date: 20130917
  Transmission Date: 20140515
  Serious: Yes (Hospitalization)
  Sender: FDA-Public Use
  Company Number: GB-BRISTOL-MYERS SQUIBB COMPANY-19176767

PATIENT
  Age: 55 Year
  Sex: Male

DRUGS (8)
  1. ORENCIA [Suspect]
     Indication: RHEUMATOID ARTHRITIS
     Route: 042
     Dates: start: 20130501
  2. PREDNISOLONE [Concomitant]
     Dosage: 1DF= 84 TABLET.?ENTERIC COATED 5MG TABS.?REDUCE DOSE BY 2.5MG EVERY 2 WK UNTIL TAKING 10MG DAILY.`
     Dates: start: 20100616, end: 20130726
  3. ALENDRONIC ACID [Concomitant]
     Dosage: 1DF=4 TABS.?70MG TABS.?TAKE 1/1WEEK ON EMPTY STOMACH WITH GLASS OF WATER.REMAIN 30MINS UPRIGHT
     Dates: start: 20101220, end: 20130820
  4. ADCAL-D3 [Concomitant]
     Dosage: 1DF=112 TABS.?TWO TABLETS TWICE DAILY.?CAPLETS 750 MG+5 MICROGRAMS(200 UNITS).
     Dates: start: 20111214, end: 20130812
  5. DAPSONE [Concomitant]
     Dosage: 1DF=20 TABS.?ONE DAILY.?100 MG TABS.
     Dates: start: 20120112, end: 20130820
  6. METHOTREXATE [Concomitant]
     Dosage: 1DF=1 PRE-FILLED DISPOSABLE INJ.?WEEKLY DOSE:25 MG ON A MONDAY.
     Dates: start: 20120529, end: 20130726
  7. OXYCODONE + NALOXONE HCL [Concomitant]
     Dosage: 1DF=56 TABS.?TWO TABS TWICE DAILY.?MR TABS 20MG+10MG.
     Dates: start: 20121120, end: 20130812
  8. PREGABALIN [Concomitant]
     Dosage: 1DF=56 TABS.?1 BD.?CAPS 25 MG.
     Dates: start: 20121126, end: 20130812

REACTIONS (3)
  - Abdominal pain [Unknown]
  - Nausea [Unknown]
  - Diarrhoea [Unknown]
